FAERS Safety Report 12636452 (Version 1)
Quarter: 2016Q3

REPORT INFORMATION
  Report Type: Spontaneous
  Country: FR (occurrence: FR)
  Receive Date: 20160809
  Receipt Date: 20160809
  Transmission Date: 20161109
  Serious: Yes (Other)
  Sender: FDA-Public Use
  Company Number: FR-MYLANLABS-2016M1032736

PATIENT

DRUGS (1)
  1. VANCOMYCINE MYLAN 1 G POUDRE POUR SOLUTION POUR PERFUSION [Suspect]
     Active Substance: VANCOMYCIN
     Indication: ANTIBIOTIC PROPHYLAXIS
     Dosage: 1 G, ONCE
     Route: 042
     Dates: start: 20160726, end: 20160726

REACTIONS (3)
  - Pruritus [Recovered/Resolved]
  - Erythema [Recovered/Resolved]
  - Lip oedema [Recovered/Resolved]

NARRATIVE: CASE EVENT DATE: 20160726
